FAERS Safety Report 7502273-5 (Version None)
Quarter: 2011Q2

REPORT INFORMATION
  Report Type: 
  Country: None (occurrence: None)
  Receive Date: 20110525
  Receipt Date: 20110510
  Transmission Date: 20111010
  Serious: No
  Sender: FDA-Public Use
  Company Number: US-B.I. PHARMACEUTICALS,INC./RIDGEFIELD-2011-BP-12760BP

PATIENT
  Age: 30 Year
  Sex: Female

DRUGS (2)
  1. COMBIVENT [Suspect]
     Route: 055
     Dates: start: 20110401
  2. COMBIVENT [Suspect]
     Indication: ASTHMA
     Route: 055
     Dates: start: 20090101, end: 20110401

REACTIONS (1)
  - CHEST DISCOMFORT [None]
